FAERS Safety Report 7677442-4 (Version None)
Quarter: 2011Q3

REPORT INFORMATION
  Report Type: 
  Country: None (occurrence: None)
  Receive Date: 20110811
  Receipt Date: 20101202
  Transmission Date: 20111222
  Serious: No
  Sender: FDA-Public Use
  Company Number: US-BRISTOL-MYERS SQUIBB COMPANY-15419120

PATIENT
  Age: 3 Decade
  Sex: Female

DRUGS (3)
  1. REYATAZ [Suspect]
  2. RITONAVIR [Concomitant]
  3. TRUVADA [Concomitant]

REACTIONS (1)
  - CD4 LYMPHOCYTES DECREASED [None]
